FAERS Safety Report 9775671 (Version 2)
Quarter: 2014Q1

REPORT INFORMATION
  Report Type: Spontaneous
  Country: MY (occurrence: MY)
  Receive Date: 20131220
  Receipt Date: 20140120
  Transmission Date: 20141002
  Serious: Yes (Other)
  Sender: FDA-Public Use
  Company Number: MY-BAYER-2013-151288

PATIENT
  Age: 56 Year
  Sex: Female

DRUGS (1)
  1. ACETYLSALICYLIC ACID (} 100 MG) [Suspect]
     Dosage: 75 MG, DAILY
     Route: 048

REACTIONS (7)
  - Retroperitoneal haemorrhage [Recovered/Resolved]
  - Haemothorax [None]
  - Hypotension [None]
  - Hydronephrosis [None]
  - Ureteric obstruction [None]
  - Vena cava injury [None]
  - Vein disorder [None]
